FAERS Safety Report 21335774 (Version 1)
Quarter: 2022Q3

REPORT INFORMATION
  Report Type: Spontaneous
  Country: US (occurrence: US)
  Receive Date: 20220915
  Receipt Date: 20220915
  Transmission Date: 20221027
  Serious: Yes (Life-Threatening, Hospitalization)
  Sender: FDA-Public Use
  Company Number: US-Vifor (International) Inc.-VIT-2022-06281

PATIENT
  Age: 62 Year
  Sex: Female
  Weight: 107.6 kg

DRUGS (1)
  1. MIRCERA [Suspect]
     Active Substance: METHOXY POLYETHYLENE GLYCOL-EPOETIN BETA
     Indication: Nephrogenic anaemia
     Dosage: STRENGTH: 30 MCG (2 SYRINGES)
     Route: 042
     Dates: start: 20220902, end: 20220902

REACTIONS (2)
  - Drug hypersensitivity [Unknown]
  - Dyspnoea [Unknown]

NARRATIVE: CASE EVENT DATE: 20220902
